FAERS Safety Report 4850191-3 (Version None)
Quarter: 2005Q4

REPORT INFORMATION
  Report Type: 
  Country: None (occurrence: None)
  Receive Date: 20051123
  Receipt Date: 20050627
  Transmission Date: 20060501
  Serious: Yes (Disabling, Other)
  Sender: FDA-Public Use
  Company Number: 2005071748

PATIENT
  Age: 60 Year
  Sex: Female
  Weight: 122.4712 kg

DRUGS (14)
  1. LIPITOR [Suspect]
     Indication: BLOOD CHOLESTEROL INCREASED
     Dosage: 10 MG (10 MG, 1 IN 1 D), ORAL
     Route: 048
     Dates: start: 20031201, end: 20050501
  2. NEORAL [Concomitant]
  3. CELLCEPT [Concomitant]
  4. PREDNISONE [Concomitant]
  5. ATENOLOL [Concomitant]
  6. CARDIZEM [Concomitant]
  7. DEMADEX [Concomitant]
  8. ALLOPURINOL [Concomitant]
  9. THYROID TAB [Concomitant]
  10. COZAAR [Concomitant]
  11. FOSAMAX [Concomitant]
  12. RESTORIL [Concomitant]
  13. VALIUM [Concomitant]
  14. ZYRTEC [Concomitant]

REACTIONS (2)
  - MUSCULAR WEAKNESS [None]
  - MYALGIA [None]
